FAERS Safety Report 7266855-0 (Version None)
Quarter: 2011Q1

REPORT INFORMATION
  Report Type: 
  Country: None (occurrence: None)
  Receive Date: 20110120
  Receipt Date: 20110105
  Transmission Date: 20110831
  Serious: Yes (Hospitalization)
  Sender: FDA-Public Use
  Company Number: 023440

PATIENT
  Sex: Male

DRUGS (10)
  1. MOBIC [Suspect]
     Indication: RHEUMATOID ARTHRITIS
     Dosage: 15 MG, 10MG AND 5 MG ORAL
     Route: 048
     Dates: start: 20060427
  2. KETOPROFEN [Concomitant]
  3. SALAZOSULFAPYRIDE (SALAZOSULFAPYRIDE) [Suspect]
     Indication: RHEUMATOID ARTHRITIS
     Dosage: 500 MG ORAL
     Route: 048
     Dates: start: 20070821
  4. PREDNISOLONE [Concomitant]
  5. FLEX /00413001/ (PELEX (NON-PYRINE COLD PREPARATION)) (NOT SPECIFIED) [Suspect]
     Indication: NASOPHARYNGITIS
     Dosage: 3 MG ORAL
     Route: 048
     Dates: start: 20101126
  6. PREDNISOLONE [Suspect]
     Indication: RHEUMATOID ARTHRITIS
     Dosage: 3.5 MG ORAL
     Route: 048
     Dates: start: 20101109
  7. FAMOTIDINE [Concomitant]
  8. CIMZIA [Suspect]
     Indication: RHEUMATOID ARTHRITIS
     Dosage: SUBCUTANEOUS; 200 MG 1X2/WEEKS SUBCUTANEOUS ; 200 MG  1X2/WEEKS SUBCUTANEOUS
     Route: 058
     Dates: start: 20090630
  9. CIMZIA [Suspect]
     Indication: RHEUMATOID ARTHRITIS
     Dosage: SUBCUTANEOUS; 200 MG 1X2/WEEKS SUBCUTANEOUS ; 200 MG  1X2/WEEKS SUBCUTANEOUS
     Route: 058
     Dates: start: 20101221
  10. CIMZIA [Suspect]
     Indication: RHEUMATOID ARTHRITIS
     Dosage: SUBCUTANEOUS; 200 MG 1X2/WEEKS SUBCUTANEOUS ; 200 MG  1X2/WEEKS SUBCUTANEOUS
     Route: 058
     Dates: start: 20091015, end: 20091126

REACTIONS (2)
  - NASOPHARYNGITIS [None]
  - UPPER GASTROINTESTINAL HAEMORRHAGE [None]
